FAERS Safety Report 16886689 (Version 2)
Quarter: 2019Q4

REPORT INFORMATION
  Report Type: Spontaneous
  Country: US (occurrence: US)
  Receive Date: 20191004
  Receipt Date: 20191011
  Transmission Date: 20200122
  Serious: Yes (Other)
  Sender: FDA-Public Use
  Company Number: US-ASTRAZENECA-2019SF40263

PATIENT
  Sex: Female

DRUGS (4)
  1. AUVERDIC HERB [Concomitant]
  2. BYDUREON BCISE [Suspect]
     Active Substance: EXENATIDE
     Route: 065
  3. BYDUREON [Suspect]
     Active Substance: EXENATIDE
     Route: 065
  4. METFORMIN [Concomitant]
     Active Substance: METFORMIN HYDROCHLORIDE

REACTIONS (6)
  - Vomiting [Unknown]
  - Pain [Unknown]
  - Impaired gastric emptying [Unknown]
  - Renal disorder [Unknown]
  - Injection site nodule [Unknown]
  - Thyroid cancer [Unknown]
